FAERS Safety Report 23215051 (Version 2)
Quarter: 2023Q4

REPORT INFORMATION
  Report Type: Spontaneous
  Country: US (occurrence: None)
  Receive Date: 20231122
  Receipt Date: 20231220
  Transmission Date: 20240110
  Serious: No
  Sender: FDA-Public Use
  Company Number: US-NATCOUSA-2023-NATCOUSA-000178

PATIENT
  Age: 35 Year
  Sex: Female
  Weight: 83.9 kg

DRUGS (1)
  1. ARMODAFINIL [Suspect]
     Active Substance: ARMODAFINIL
     Indication: Sleep disorder
     Dosage: 1 TAB ABOUT 7 AM EACH DAY
     Route: 048
     Dates: start: 20231011

REACTIONS (11)
  - Drug ineffective [Not Recovered/Not Resolved]
  - Product size issue [Unknown]
  - Product physical issue [Unknown]
  - Ulcer [Not Recovered/Not Resolved]
  - Feeling abnormal [Not Recovered/Not Resolved]
  - Pain in extremity [Recovered/Resolved]
  - Sleep disorder [Not Recovered/Not Resolved]
  - Fatigue [Not Recovered/Not Resolved]
  - Dermatitis allergic [Unknown]
  - Somnolence [Unknown]
  - Product substitution issue [Unknown]

NARRATIVE: CASE EVENT DATE: 20231011
